FAERS Safety Report 7957843-7 (Version None)
Quarter: 2011Q4

REPORT INFORMATION
  Report Type: 
  Country: None (occurrence: None)
  Receive Date: 20111130
  Receipt Date: 20111115
  Transmission Date: 20120403
  Serious: Yes (Hospitalization)
  Sender: FDA-Public Use
  Company Number: GRT 2011-15309

PATIENT
  Age: 46 Year
  Sex: Female

DRUGS (1)
  1. LIDOCAINE [Suspect]
     Dosage: 1 20 PATCHES

REACTIONS (2)
  - OVERDOSE [None]
  - DRUG INEFFECTIVE [None]
